FAERS Safety Report 23815111 (Version 1)
Quarter: 2024Q2

REPORT INFORMATION
  Report Type: Spontaneous
  Country: CA (occurrence: CA)
  Receive Date: 20240503
  Receipt Date: 20240503
  Transmission Date: 20240716
  Serious: Yes (Other)
  Sender: FDA-Public Use
  Company Number: CA-PFIZER INC-202400094754

PATIENT
  Age: 45 Year
  Sex: Male

DRUGS (2)
  1. ABRILADA [Suspect]
     Active Substance: ADALIMUMAB-AFZB
     Indication: Crohn^s disease
     Dosage: 1 DF, WK 0:160MG, WK 2:80MG THEN 40 MG EVERY OTHER WEEK
     Route: 058
     Dates: start: 20240319
  2. ABRILADA [Suspect]
     Active Substance: ADALIMUMAB-AFZB
     Dosage: 80 MG,AFTER 5 WKS (WK 0:160MG, WK 2:80MG THEN 40 MG EVRY OTHER WK)
     Route: 058
     Dates: start: 20240424

REACTIONS (2)
  - Brain oedema [Recovering/Resolving]
  - Fall [Recovering/Resolving]

NARRATIVE: CASE EVENT DATE: 20240301
